FAERS Safety Report 18111633 (Version 1)
Quarter: 2020Q3

REPORT INFORMATION
  Report Type: Spontaneous
  Country: CN (occurrence: CN)
  Receive Date: 20200804
  Receipt Date: 20200804
  Transmission Date: 20201103
  Serious: Yes (Other)
  Sender: FDA-Public Use
  Company Number: CN-BEH-2020120579

PATIENT

DRUGS (1)
  1. ALBUMINAR [Suspect]
     Active Substance: ALBUMIN HUMAN
     Route: 050

REACTIONS (2)
  - Pruritus [Recovering/Resolving]
  - Dyspnoea [Recovering/Resolving]
